FAERS Safety Report 5418629-0 (Version None)
Quarter: 2007Q3

REPORT INFORMATION
  Report Type: 
  Country: None (occurrence: None)
  Receive Date: 20070817
  Receipt Date: 20070806
  Transmission Date: 20080115
  Serious: Yes (Other)
  Sender: FDA-Public Use
  Company Number: US-PFIZER INC-2005055975

PATIENT
  Sex: Female
  Weight: 47.2 kg

DRUGS (4)
  1. SUTENT [Suspect]
     Indication: BREAST CANCER METASTATIC
     Route: 048
  2. ATENOLOL [Concomitant]
     Route: 048
  3. HYDROCHLOROTHIAZIDE [Concomitant]
     Route: 048
  4. POTASSIUM CHLORIDE [Concomitant]
     Route: 048

REACTIONS (1)
  - TOOTH ABSCESS [None]
